FAERS Safety Report 16965392 (Version 1)
Quarter: 2019Q4

REPORT INFORMATION
  Report Type: Spontaneous
  Country: US (occurrence: US)
  Receive Date: 20190909
  Receipt Date: 20190909
  Transmission Date: 20200122
  Serious: No
  Sender: FDA-Public Use
  Company Number: None

PATIENT
  Age: 50 Year
  Sex: Female

DRUGS (2)
  1. LETROZOLE. [Concomitant]
     Active Substance: LETROZOLE
  2. IBRANCE [Suspect]
     Active Substance: PALBOCICLIB
     Indication: BREAST CANCER
     Dosage: ?          OTHER FREQUENCY:ONCE EVRY 21DAYS;?
     Route: 048
     Dates: start: 201906

REACTIONS (4)
  - Dry skin [None]
  - Pruritus [None]
  - Rash [None]
  - Somnolence [None]

NARRATIVE: CASE EVENT DATE: 20190626
